FAERS Safety Report 10422612 (Version 4)
Quarter: 2014Q4

REPORT INFORMATION
  Report Type: Spontaneous
  Country: SA (occurrence: SA)
  Receive Date: 20140901
  Receipt Date: 20141117
  Transmission Date: 20150528
  Serious: Yes (Other)
  Sender: FDA-Public Use
  Company Number: SA-PFIZER INC-2014015406

PATIENT
  Age: 25 Year
  Sex: Female

DRUGS (5)
  1. LYRICA [Suspect]
     Active Substance: PREGABALIN
     Dosage: 1350 MG, DAILY
     Route: 048
  2. REMERON [Concomitant]
     Active Substance: MIRTAZAPINE
     Indication: MENTAL DISORDER
  3. DEPAKINE [Concomitant]
     Active Substance: VALPROATE SODIUM
     Indication: MENTAL DISORDER
  4. ZOLPIDEM [Concomitant]
     Active Substance: ZOLPIDEM\ZOLPIDEM TARTRATE
     Indication: SLEEP DISORDER
  5. ZOLPIDEM [Concomitant]
     Active Substance: ZOLPIDEM\ZOLPIDEM TARTRATE
     Indication: MENTAL DISORDER

REACTIONS (2)
  - Drug abuse [Unknown]
  - Aggression [Unknown]
